FAERS Safety Report 14088599 (Version 3)
Quarter: 2018Q4

REPORT INFORMATION
  Report Type: Report from Study
  Country: None (occurrence: DO)
  Receive Date: 20171013
  Receipt Date: 20181017
  Transmission Date: 20190204
  Serious: Yes (Hospitalization, Other)
  Sender: FDA-Public Use
  Company Number: DO-ABBVIE-17K-279-2129800-00

PATIENT
  Sex: Female

DRUGS (2)
  1. HUMIRA [Suspect]
     Active Substance: ADALIMUMAB
     Indication: RHEUMATOID ARTHRITIS
     Route: 058
     Dates: start: 20140506, end: 20170822
  2. PREDNISONE. [Concomitant]
     Active Substance: PREDNISONE
     Indication: PRODUCT USED FOR UNKNOWN INDICATION

REACTIONS (7)
  - Rheumatoid factor increased [Recovered/Resolved]
  - Eyelid cyst [Recovering/Resolving]
  - Herpes virus infection [Recovering/Resolving]
  - Gastric cyst [Unknown]
  - Anaemia [Recovering/Resolving]
  - Cyst [Unknown]
  - Breast cyst [Recovering/Resolving]

NARRATIVE: CASE EVENT DATE: 20180303
